FAERS Safety Report 4849445-6 (Version None)
Quarter: 2005Q4

REPORT INFORMATION
  Report Type: 
  Country: None (occurrence: None)
  Receive Date: 20051207
  Receipt Date: 20051129
  Transmission Date: 20060501
  Serious: Yes (Hospitalization)
  Sender: FDA-Public Use
  Company Number: 2005BI020298

PATIENT
  Age: 46 Year
  Sex: Female

DRUGS (7)
  1. AVONEX [Suspect]
     Indication: MULTIPLE SCLEROSIS
     Dosage: 30 UG; QW; IM
     Route: 030
     Dates: start: 20030214
  2. AVONEX [Suspect]
     Indication: MULTIPLE SCLEROSIS
     Dosage: 30 UG; QW; IM
     Route: 030
  3. METHYLPHENIDATE HCL [Concomitant]
  4. FLUOXETINE [Concomitant]
  5. AMANTIDINE [Concomitant]
  6. LEVOTHROID [Concomitant]
  7. NIFEDIPINE [Concomitant]

REACTIONS (5)
  - AORTIC VALVE INCOMPETENCE [None]
  - ATRIAL FIBRILLATION [None]
  - BASEDOW'S DISEASE [None]
  - CARDIAC VALVE DISEASE [None]
  - HYPOKALAEMIA [None]
